FAERS Safety Report 22945097 (Version 2)
Quarter: 2023Q4

REPORT INFORMATION
  Report Type: Spontaneous
  Country: US (occurrence: US)
  Receive Date: 20230914
  Receipt Date: 20231020
  Transmission Date: 20240109
  Serious: No
  Sender: FDA-Public Use
  Company Number: US-PFIZER INC-PV202300153567

PATIENT
  Age: 69 Year
  Sex: Female

DRUGS (1)
  1. XELJANZ XR [Suspect]
     Active Substance: TOFACITINIB CITRATE
     Indication: Rheumatoid arthritis
     Dosage: 11 MG, 1X/DAY
     Route: 048
     Dates: start: 202308, end: 2023

REACTIONS (5)
  - Joint swelling [Not Recovered/Not Resolved]
  - Joint range of motion decreased [Unknown]
  - Gait disturbance [Unknown]
  - Dermatitis contact [Unknown]
  - Malaise [Unknown]

NARRATIVE: CASE EVENT DATE: 20230101
